FAERS Safety Report 7125443-7 (Version None)
Quarter: 2010Q4

REPORT INFORMATION
  Report Type: 
  Country: None (occurrence: None)
  Receive Date: 20101129
  Receipt Date: 20101117
  Transmission Date: 20110411
  Serious: Yes (Other)
  Sender: FDA-Public Use
  Company Number: US-MYLANLABS-2010S1021283

PATIENT
  Sex: Female
  Weight: 53.52 kg

DRUGS (10)
  1. LIPITOR [Suspect]
     Indication: BLOOD CHOLESTEROL INCREASED
     Route: 048
  2. ZOCOR [Suspect]
     Indication: BLOOD CHOLESTEROL INCREASED
     Route: 048
  3. LOVASTATIN [Suspect]
     Indication: BLOOD CHOLESTEROL INCREASED
  4. AMLODIPINE BESILATE [Concomitant]
     Route: 048
  5. ATENOLOL [Concomitant]
     Route: 048
  6. TRIAMTERENE [Concomitant]
     Dosage: 37.5MG/25MG
     Route: 048
  7. LOSARTAN [Concomitant]
     Indication: BLOOD PRESSURE INCREASED
     Route: 048
  8. PAXIL [Concomitant]
     Indication: DEPRESSION
     Route: 048
  9. LEVOTHYROXINE [Concomitant]
     Indication: THYROID DISORDER
     Route: 048
  10. ACETYLSALICYLIC ACID [Concomitant]

REACTIONS (3)
  - AORTIC ANEURYSM [None]
  - BLOOD CREATINE PHOSPHOKINASE INCREASED [None]
  - MUSCLE SPASMS [None]
